FAERS Safety Report 6406394-X (Version None)
Quarter: 2009Q4

REPORT INFORMATION
  Report Type: 
  Country: None (occurrence: None)
  Receive Date: 20091014
  Receipt Date: 20090928
  Transmission Date: 20100525
  Serious: Yes (Disabling, Other)
  Sender: FDA-Public Use
  Company Number: PAR_03119_2009

PATIENT
  Sex: Male
  Weight: 62.1428 kg

DRUGS (1)
  1. MEGACE ES [Suspect]
     Indication: DECREASED APPETITE
     Dosage: (5 ML QD ORAL)
     Route: 048
     Dates: end: 20090601

REACTIONS (3)
  - BLINDNESS UNILATERAL [None]
  - CEREBROVASCULAR ACCIDENT [None]
  - HEMIANOPIA HOMONYMOUS [None]
